FAERS Safety Report 23097182 (Version 2)
Quarter: 2023Q4

REPORT INFORMATION
  Report Type: Spontaneous
  Country: IR (occurrence: IR)
  Receive Date: 20231023
  Receipt Date: 20231031
  Transmission Date: 20240110
  Serious: Yes (Life-Threatening, Hospitalization, Other)
  Sender: FDA-Public Use
  Company Number: IR-SUN PHARMACEUTICAL INDUSTRIES LTD-2023R1-414536

PATIENT
  Age: 19 Year
  Sex: Female

DRUGS (1)
  1. BACLOFEN [Suspect]
     Active Substance: BACLOFEN
     Indication: Product used for unknown indication
     Dosage: 500 MILLIGRAM
     Route: 065

REACTIONS (11)
  - Intentional overdose [Unknown]
  - Suicide attempt [Unknown]
  - Toxicity to various agents [Unknown]
  - Pneumomediastinum [Unknown]
  - Atelectasis [Unknown]
  - Loss of consciousness [Recovered/Resolved]
  - Mania [Unknown]
  - Catatonia [Unknown]
  - Logorrhoea [Unknown]
  - Hallucination, visual [Unknown]
  - Agitation [Unknown]
